FAERS Safety Report 9979995 (Version 1)
Quarter: 2014Q1

REPORT INFORMATION
  Report Type: Spontaneous
  Country: US (occurrence: None)
  Receive Date: 20140305
  Receipt Date: 20140305
  Transmission Date: 20141002
  Serious: No
  Sender: FDA-Public Use
  Company Number: None

PATIENT
  Age: 56 Year
  Sex: Male
  Weight: 70.76 kg

DRUGS (1)
  1. TOPOSAR [Suspect]
     Indication: LUNG NEOPLASM MALIGNANT
     Dosage: IVSS
     Dates: start: 20140303

REACTIONS (7)
  - Nausea [None]
  - Pallor [None]
  - Hyperhidrosis [None]
  - Blood pressure increased [None]
  - Oxygen saturation decreased [None]
  - Dyspnoea [None]
  - Infusion related reaction [None]
